FAERS Safety Report 9374594 (Version 1)
Quarter: 2013Q2

REPORT INFORMATION
  Report Type: Spontaneous
  Country: JP (occurrence: JP)
  Receive Date: 20130628
  Receipt Date: 20130628
  Transmission Date: 20140414
  Serious: Yes (Hospitalization)
  Sender: FDA-Public Use
  Company Number: JP-BRACCO-006962

PATIENT
  Age: 81 Year
  Sex: Male

DRUGS (7)
  1. IOPAMIRON [Suspect]
     Indication: COMPUTERISED TOMOGRAM
     Route: 042
     Dates: start: 20130415, end: 20130415
  2. MICARDIS [Concomitant]
  3. GLUCOBAY [Concomitant]
  4. FLUDEOXYGLUCOSE (18F) [Concomitant]
     Indication: POSITRON EMISSION TOMOGRAM
     Dates: start: 20130415, end: 20130415
  5. PLAVIX [Concomitant]
  6. UBRETID [Concomitant]
  7. AMLODIN [Concomitant]

REACTIONS (7)
  - Glassy eyes [Recovered/Resolved]
  - Tremor [Recovered/Resolved]
  - Unresponsive to stimuli [Recovered/Resolved]
  - Altered state of consciousness [Recovered/Resolved]
  - Blood pressure immeasurable [Recovered/Resolved]
  - Ventricular tachycardia [Recovered/Resolved]
  - Pyelonephritis acute [Recovered/Resolved]
